FAERS Safety Report 7632008-7 (Version None)
Quarter: 2011Q3

REPORT INFORMATION
  Report Type: 
  Country: None (occurrence: None)
  Receive Date: 20110725
  Receipt Date: 20101215
  Transmission Date: 20111222
  Serious: No
  Sender: FDA-Public Use
  Company Number: US-BRISTOL-MYERS SQUIBB COMPANY-13504428

PATIENT
  Age: 72 Year
  Sex: Female
  Weight: 54 kg

DRUGS (5)
  1. FISH OIL [Concomitant]
  2. COUMADIN [Suspect]
     Indication: HEART VALVE REPLACEMENT
     Dosage: 5MG DAILY TIMES 6 DAYS AND 7.5MG DAILY TIMES 1 DAY.
     Route: 048
     Dates: start: 20000101
  3. VITAMIN TAB [Concomitant]
  4. LISINOPRIL [Concomitant]
  5. AMOXICILLIN [Concomitant]

REACTIONS (2)
  - INTERNATIONAL NORMALISED RATIO FLUCTUATION [None]
  - VISION BLURRED [None]
